FAERS Safety Report 4614150-8 (Version None)
Quarter: 2005Q1

REPORT INFORMATION
  Report Type: 
  Country: None (occurrence: None)
  Receive Date: 20050316
  Receipt Date: 20050224
  Transmission Date: 20050727
  Serious: Yes (Disabling)
  Sender: FDA-Public Use
  Company Number: SUSI-2004-00678

PATIENT
  Age: 26 Year
  Sex: Male

DRUGS (5)
  1. PENTASA [Suspect]
     Indication: COLITIS ULCERATIVE
     Dosage: SEE IMAGE
     Route: 048
     Dates: start: 20020912, end: 20030623
  2. PENTASA [Suspect]
     Indication: COLITIS ULCERATIVE
     Dosage: SEE IMAGE
     Route: 048
     Dates: start: 20030624, end: 20040406
  3. PENTASA [Suspect]
     Indication: COLITIS ULCERATIVE
     Dosage: SEE IMAGE
     Route: 048
     Dates: start: 20040406, end: 20040623
  4. PENTASA [Suspect]
     Indication: COLITIS ULCERATIVE
     Dosage: SEE IMAGE
     Route: 048
     Dates: start: 20040624, end: 20040803
  5. SCOPOLAMINE [Concomitant]

REACTIONS (7)
  - BLOOD IMMUNOGLOBULIN G INCREASED [None]
  - CHRONIC HEPATITIS [None]
  - COLITIS ULCERATIVE [None]
  - CONDITION AGGRAVATED [None]
  - HEPATIC FIBROSIS [None]
  - LYMPHOCYTE STIMULATION TEST POSITIVE [None]
  - SPLENOMEGALY [None]
